FAERS Safety Report 6079170-8 (Version None)
Quarter: 2009Q1

REPORT INFORMATION
  Report Type: 
  Country: None (occurrence: None)
  Receive Date: 20090216
  Receipt Date: 20090206
  Transmission Date: 20090719
  Serious: Yes (Other)
  Sender: FDA-Public Use
  Company Number: B0547879A

PATIENT
  Age: 40 Year
  Sex: Female
  Weight: 70 kg

DRUGS (5)
  1. WELLBUTRIN XR [Suspect]
     Indication: DEPRESSION
     Dosage: 150MG PER DAY
     Route: 048
     Dates: start: 20080203
  2. SEROQUEL [Concomitant]
     Route: 048
  3. ZOLPIDEM [Concomitant]
     Indication: SLEEP DISORDER
     Route: 048
  4. NORDETTE-28 [Concomitant]
     Indication: CONTRACEPTION
  5. ATENOLOL [Concomitant]
     Dosage: 25MG TWICE PER DAY
     Route: 048
     Dates: start: 20081101

REACTIONS (3)
  - HYPERTENSION [None]
  - PALPITATIONS [None]
  - SINUS TACHYCARDIA [None]
